FAERS Safety Report 15245539 (Version 3)
Quarter: 2018Q3

REPORT INFORMATION
  Report Type: Spontaneous
  Country: DE (occurrence: DE)
  Receive Date: 20180806
  Receipt Date: 20180904
  Transmission Date: 20181010
  Serious: Yes (Congenital Anomaly, Other)
  Sender: FDA-Public Use
  Company Number: PHHY2018DE063337

PATIENT
  Sex: Male
  Weight: .34 kg

DRUGS (7)
  1. LEVOTHYROXINE. [Suspect]
     Active Substance: LEVOTHYROXINE
     Indication: FOETAL EXPOSURE DURING PREGNANCY
     Dosage: PREGNANCY WEEK 0 TO 35 (+3)
     Route: 064
     Dates: start: 20130310, end: 20131113
  2. INSULIN [Concomitant]
     Active Substance: INSULIN NOS
     Indication: PRODUCT USED FOR UNKNOWN INDICATION
     Route: 064
  3. METFORMIN [Suspect]
     Active Substance: METFORMIN HYDROCHLORIDE
     Indication: FOETAL EXPOSURE DURING PREGNANCY
     Dosage: PREGNANCY WEEK 0 TO 6 (+4)
     Route: 064
  4. RAMIPRIL. [Suspect]
     Active Substance: RAMIPRIL
     Indication: FOETAL EXPOSURE DURING PREGNANCY
     Dosage: MOTHER DOSE: 10 MG, (PREGNANCY WEEK 0 TO 6 +4)
     Route: 064
  5. METHYLDOPA. [Suspect]
     Active Substance: METHYLDOPA
     Indication: FOETAL EXPOSURE DURING PREGNANCY
     Dosage: PREGNANCY WEEK 7(+4) TO 35 (+3)
     Route: 064
  6. METOPROLOL. [Suspect]
     Active Substance: METOPROLOL
     Indication: FOETAL EXPOSURE DURING PREGNANCY
     Dosage: PREGNANCY WEEK 7(+4) TO 35 (+3)
     Route: 064
     Dates: start: 20130310, end: 20131113
  7. SITAGLIPTIN [Suspect]
     Active Substance: SITAGLIPTIN
     Indication: FOETAL EXPOSURE DURING PREGNANCY
     Dosage: UNK
     Route: 064
     Dates: start: 20130310, end: 20130425

REACTIONS (4)
  - Foetal exposure during pregnancy [Recovered/Resolved]
  - Diabetic foetopathy [Recovered/Resolved]
  - Large for dates baby [Recovering/Resolving]
  - Atrial septal defect [Unknown]

NARRATIVE: CASE EVENT DATE: 20131113
